FAERS Safety Report 12430026 (Version 2)
Quarter: 2016Q2

REPORT INFORMATION
  Report Type: Report from Study
  Country: BR (occurrence: BR)
  Receive Date: 20160602
  Receipt Date: 20160608
  Transmission Date: 20160815
  Serious: Yes (Other)
  Sender: FDA-Public Use
  Company Number: BR-ABBVIE-16P-020-1642494-00

PATIENT
  Sex: Female
  Weight: 58 kg

DRUGS (6)
  1. OMEPRAZOLE. [Concomitant]
     Active Substance: OMEPRAZOLE
     Indication: GASTRIC DISORDER
     Dosage: IN FASTING; DAILY DOSE: 2 TABLETS
     Route: 048
     Dates: start: 1996
  2. NEUROTIN [Concomitant]
     Active Substance: GABAPENTIN
     Indication: PAIN
     Dosage: IN MORNING AND AT NIGHT (DAILY DOSE: 600 MG)
     Route: 048
     Dates: start: 201604
  3. SYNTHROID [Suspect]
     Active Substance: LEVOTHYROXINE SODIUM
     Route: 048
  4. SYNTHROID [Suspect]
     Active Substance: LEVOTHYROXINE SODIUM
     Indication: HYPOTHYROIDISM
     Route: 048
     Dates: start: 1996
  5. FRONTAL [Concomitant]
     Active Substance: ALPRAZOLAM
     Indication: DEPRESSION
     Route: 048
     Dates: start: 2006
  6. FRONTAL [Concomitant]
     Active Substance: ALPRAZOLAM
     Indication: PANIC REACTION

REACTIONS (2)
  - Metastases to bone [Unknown]
  - Breast cancer female [Unknown]

NARRATIVE: CASE EVENT DATE: 2009
